FAERS Safety Report 19501615 (Version 1)
Quarter: 2021Q3

REPORT INFORMATION
  Report Type: Spontaneous
  Country: JP (occurrence: JP)
  Receive Date: 20210707
  Receipt Date: 20210707
  Transmission Date: 20211014
  Serious: Yes (Other)
  Sender: FDA-Public Use
  Company Number: JP-DSJP-DSJ-2021-100648

PATIENT

DRUGS (1)
  1. ENHERTU [Suspect]
     Active Substance: FAM-TRASTUZUMAB DERUXTECAN-NXKI
     Indication: BREAST CANCER
     Dosage: 270 MG, ONCE EVERY 3 WK
     Route: 041
     Dates: start: 20201005, end: 20210401

REACTIONS (3)
  - Constipation [Unknown]
  - Metastases to peritoneum [Unknown]
  - Vomiting [Unknown]

NARRATIVE: CASE EVENT DATE: 20210323
